FAERS Safety Report 21247115 (Version 1)
Quarter: 2022Q3

REPORT INFORMATION
  Report Type: Spontaneous
  Country: US (occurrence: None)
  Receive Date: 20220823
  Receipt Date: 20220823
  Transmission Date: 20221026
  Serious: Yes (Hospitalization)
  Sender: FDA-Public Use
  Company Number: None

PATIENT
  Sex: Male

DRUGS (2)
  1. LORBRENA [Suspect]
     Active Substance: LORLATINIB
     Indication: Lung carcinoma cell type unspecified stage 0
     Dosage: 100MG 1 TAB DAILY ORAL?
     Route: 048
  2. TABRECTA [Suspect]
     Active Substance: CAPMATINIB
     Indication: Lung carcinoma cell type unspecified stage 0
     Dosage: 200MG 2 TABS TWICE A DAY ORAL?
     Route: 048

REACTIONS (2)
  - Kidney infection [None]
  - Intestinal obstruction [None]
